FAERS Safety Report 7357203-6 (Version None)
Quarter: 2011Q1

REPORT INFORMATION
  Report Type: 
  Country: None (occurrence: None)
  Receive Date: 20110317
  Receipt Date: 20110311
  Transmission Date: 20110831
  Serious: No
  Sender: FDA-Public Use
  Company Number: US-PFIZER INC-2011054696

PATIENT
  Sex: Male
  Weight: 113 kg

DRUGS (1)
  1. DEPO-TESTOSTERONE [Suspect]
     Indication: PITUITARY-DEPENDENT CUSHING'S SYNDROME
     Dosage: 200 MG/ML, MONTHLY
     Route: 058
     Dates: start: 20110308

REACTIONS (4)
  - POLLAKIURIA [None]
  - MALAISE [None]
  - DIZZINESS [None]
  - NAUSEA [None]
